FAERS Safety Report 14912088 (Version 7)
Quarter: 2024Q2

REPORT INFORMATION
  Report Type: Spontaneous
  Country: US (occurrence: US)
  Receive Date: 20180518
  Receipt Date: 20240516
  Transmission Date: 20240716
  Serious: No
  Sender: FDA-Public Use
  Company Number: US-PFIZER INC-2018200944

PATIENT
  Age: 63 Year
  Sex: Female

DRUGS (1)
  1. XELJANZ XR [Suspect]
     Active Substance: TOFACITINIB CITRATE
     Indication: Rheumatoid arthritis
     Dosage: 11 MG

REACTIONS (16)
  - Hand deformity [Unknown]
  - Rash [Unknown]
  - COVID-19 [Unknown]
  - Loss of personal independence in daily activities [Unknown]
  - Pain in extremity [Unknown]
  - Pain [Not Recovered/Not Resolved]
  - Musculoskeletal stiffness [Not Recovered/Not Resolved]
  - Dry eye [Unknown]
  - Rosacea [Unknown]
  - Foot deformity [Unknown]
  - Joint range of motion decreased [Unknown]
  - Confusional state [Unknown]
  - Fatigue [Unknown]
  - Circadian rhythm sleep disorder [Unknown]
  - Influenza [Unknown]
  - Hypertension [Unknown]
